FAERS Safety Report 11075198 (Version 2)
Quarter: 2015Q4

REPORT INFORMATION
  Report Type: Spontaneous
  Country: CA (occurrence: CA)
  Receive Date: 20150429
  Receipt Date: 20151209
  Transmission Date: 20160304
  Serious: Yes (Hospitalization, Other)
  Sender: FDA-Public Use
  Company Number: CA-ROCHE-1570320

PATIENT
  Age: 43 Year
  Sex: Female

DRUGS (9)
  1. PREDNISONE. [Concomitant]
     Active Substance: PREDNISONE
     Dosage: DOSE INCREASED
     Route: 065
  2. PREDNISONE. [Concomitant]
     Active Substance: PREDNISONE
     Dosage: DOSE DECREASED FOR 3 DAYS
     Route: 065
     Dates: start: 20150415
  3. XOLAIR [Suspect]
     Active Substance: OMALIZUMAB
     Indication: ASTHMA
     Route: 058
     Dates: start: 20150211
  4. AZITHROMYCIN [Concomitant]
     Active Substance: AZITHROMYCIN ANHYDROUS
     Route: 042
     Dates: end: 20150415
  5. PREDNISONE. [Concomitant]
     Active Substance: PREDNISONE
     Route: 065
  6. CEFPROZIL. [Concomitant]
     Active Substance: CEFPROZIL
     Route: 065
  7. PREDNISONE. [Concomitant]
     Active Substance: PREDNISONE
     Route: 065
  8. AZITHROMYCIN [Concomitant]
     Active Substance: AZITHROMYCIN ANHYDROUS
     Dosage: FOR 3 DAYS (LAST DAY WAS 15 APR 2015)
     Route: 048
  9. PREDNISONE. [Concomitant]
     Active Substance: PREDNISONE
     Dosage: FOR 3 DAYS
     Route: 065

REACTIONS (14)
  - Cushing^s syndrome [Unknown]
  - Anosmia [Recovering/Resolving]
  - Pneumonia [Unknown]
  - Fatigue [Unknown]
  - Muscle disorder [Recovered/Resolved]
  - Myalgia [Unknown]
  - Tenderness [Not Recovered/Not Resolved]
  - Productive cough [Unknown]
  - Sinusitis [Unknown]
  - Asthma [Unknown]
  - Chest discomfort [Unknown]
  - Wheezing [Unknown]
  - Bronchitis [Unknown]
  - Somnolence [Unknown]

NARRATIVE: CASE EVENT DATE: 20150211
